FAERS Safety Report 21191739 (Version 8)
Quarter: 2023Q2

REPORT INFORMATION
  Report Type: Report from Study
  Country: US (occurrence: US)
  Receive Date: 20220809
  Receipt Date: 20230512
  Transmission Date: 20230722
  Serious: No
  Sender: FDA-Public Use
  Company Number: US-NOVARTISTESTPH-NVSC2022US179774

PATIENT
  Age: 45 Year
  Sex: Male

DRUGS (2)
  1. KESIMPTA [Suspect]
     Active Substance: OFATUMUMAB
     Indication: Multiple sclerosis
     Dosage: 20 MG, QMO
     Route: 058
     Dates: start: 20220715
  2. KESIMPTA [Suspect]
     Active Substance: OFATUMUMAB
     Dosage: 0.4 ML
     Route: 058

REACTIONS (6)
  - Muscle spasms [Unknown]
  - Pain in extremity [Recovered/Resolved]
  - Injury [Recovered/Resolved]
  - Blister [Recovered/Resolved]
  - Dyskinesia [Unknown]
  - Injection site scar [Unknown]

NARRATIVE: CASE EVENT DATE: 20220701
